FAERS Safety Report 9416202 (Version 2)
Quarter: 2013Q3

REPORT INFORMATION
  Report Type: Spontaneous
  Country: BR (occurrence: None)
  Receive Date: 20130718
  Receipt Date: 20130801
  Transmission Date: 20140515
  Serious: Yes (Other)
  Sender: FDA-Public Use
  Company Number: 20130335

PATIENT
  Age: 33 Year
  Sex: Female

DRUGS (3)
  1. VENOFER [Suspect]
     Indication: ANAEMIA
     Dosage: 1 AMPOULE (100MG)
     Route: 042
     Dates: start: 20130603, end: 20130603
  2. ERYTHROPOIETIN [Concomitant]
  3. HEPARIN [Concomitant]

REACTIONS (3)
  - Malaise [None]
  - Back pain [None]
  - Bronchospasm [None]
